FAERS Safety Report 7099842-6 (Version None)
Quarter: 2010Q4

REPORT INFORMATION
  Report Type: 
  Country: None (occurrence: None)
  Receive Date: 20101112
  Receipt Date: 20101108
  Transmission Date: 20110411
  Serious: Yes (Other)
  Sender: FDA-Public Use
  Company Number: US-BAYER-201023454BCC

PATIENT
  Age: 80 Year
  Sex: Male
  Weight: 93 kg

DRUGS (3)
  1. ALEVE (CAPLET) [Suspect]
     Indication: BACK PAIN
     Dosage: WAS TAKING 1100 TO 1320 DAILY / COUNT BOTTLE 150S
     Route: 048
  2. PRILOSEC [Concomitant]
     Route: 065
  3. ATENOLOL [Concomitant]
     Route: 065

REACTIONS (1)
  - HYPOACUSIS [None]
